FAERS Safety Report 9026243 (Version 4)
Quarter: 2013Q4

REPORT INFORMATION
  Report Type: Spontaneous
  Country: NL (occurrence: NL)
  Receive Date: 20130104
  Receipt Date: 20131024
  Transmission Date: 20140711
  Serious: Yes (Death)
  Sender: FDA-Public Use
  Company Number: 2012MPI00599

PATIENT
  Age: 44 Year
  Sex: Male
  Weight: 72 kg

DRUGS (8)
  1. BRENTUXIMAB VEDOTIN [Suspect]
     Indication: HODGKIN^S DISEASE
     Route: 042
     Dates: start: 20110201, end: 20110729
  2. PREDNISONE [Concomitant]
  3. NANOGAM [Concomitant]
  4. COTRIMOXAZOLE (SULFAMETHOXAZOLE, TRIMETHOPRIM) [Concomitant]
  5. VALGANICICLOVIR (VALGANCICLOVIR) [Concomitant]
  6. FLUDARABINE(FLUDARABINE PHOSPHATE) [Concomitant]
  7. RITUXIMAB (RITUXIMAB) [Concomitant]
  8. FILGRASTIM (FILGRASTIM) [Concomitant]

REACTIONS (9)
  - Progressive multifocal leukoencephalopathy [None]
  - Stem cell transplant [None]
  - Surgical procedure repeated [None]
  - Staphylococcal infection [None]
  - Cytomegalovirus infection [None]
  - Graft versus host disease in skin [None]
  - Strabismus [None]
  - Pneumonia [None]
  - Pancytopenia [None]
